FAERS Safety Report 8010518-0 (Version None)
Quarter: 2011Q4

REPORT INFORMATION
  Report Type: 
  Country: None (occurrence: None)
  Receive Date: 20111228
  Receipt Date: 20111213
  Transmission Date: 20120403
  Serious: Yes (Hospitalization, Other)
  Sender: FDA-Public Use
  Company Number: PHHY2011CH109831

PATIENT
  Age: 75 Year
  Sex: Male

DRUGS (6)
  1. TAXOTERE [Concomitant]
     Indication: NEOPLASM MALIGNANT
     Dates: start: 20110912, end: 20111010
  2. DIOVAN [Suspect]
     Dates: end: 20111101
  3. NEXIUM [Concomitant]
     Dosage: 40 MG, UNK
     Route: 048
     Dates: start: 20111101, end: 20111120
  4. DILZEM [Concomitant]
     Dates: end: 20111101
  5. SINTROM [Suspect]
     Indication: ANTICOAGULANT THERAPY
     Route: 048
     Dates: start: 20080101, end: 20111119
  6. PANTOPRAZOLE SODIUM [Concomitant]
     Dates: end: 20111101

REACTIONS (8)
  - DYSPNOEA [None]
  - EPISTAXIS [None]
  - HAEMATOCHEZIA [None]
  - INTERNATIONAL NORMALISED RATIO INCREASED [None]
  - RESPIRATORY DISTRESS [None]
  - MELAENA [None]
  - ANAEMIA [None]
  - TACHYCARDIA [None]
